FAERS Safety Report 10983338 (Version 1)
Quarter: 2015Q2

REPORT INFORMATION
  Report Type: Spontaneous
  Country: US (occurrence: US)
  Receive Date: 20150403
  Receipt Date: 20150403
  Transmission Date: 20150821
  Serious: No
  Sender: FDA-Public Use
  Company Number: US-PFIZER INC-2015117054

PATIENT
  Age: 55 Year
  Sex: Female
  Weight: 53.97 kg

DRUGS (2)
  1. SYNTHROID [Concomitant]
     Active Substance: LEVOTHYROXINE SODIUM
     Indication: HYPOTHYROIDISM
     Dosage: 125 ?G, 1X/DAY
  2. DUAVEE [Suspect]
     Active Substance: BAZEDOXIFENE ACETATE\ESTROGENS, CONJUGATED
     Indication: MENOPAUSE
     Dosage: UNK (0.45MG/20 MG), 1X/DAY
     Route: 048
     Dates: start: 201405

REACTIONS (3)
  - Arthralgia [Unknown]
  - Joint swelling [Unknown]
  - Blood thyroid stimulating hormone increased [Unknown]
